FAERS Safety Report 7743623-4 (Version None)
Quarter: 2011Q3

REPORT INFORMATION
  Report Type: 
  Country: None (occurrence: None)
  Receive Date: 20110906
  Receipt Date: 20110823
  Transmission Date: 20111222
  Serious: Yes (Other)
  Sender: FDA-Public Use
  Company Number: 2011SP039889

PATIENT
  Age: 53 Year
  Sex: Male

DRUGS (5)
  1. VICTRELIS [Suspect]
     Indication: HEPATITIS C
     Dosage: 200 MG; TID; PO
     Route: 048
     Dates: start: 20110808
  2. NEXIUM [Concomitant]
  3. WELLBUTRIN [Concomitant]
  4. AMLODIPINE [Concomitant]
  5. LOVAZA [Concomitant]

REACTIONS (4)
  - VOMITING [None]
  - THROAT TIGHTNESS [None]
  - PHARYNGEAL OEDEMA [None]
  - SWOLLEN TONGUE [None]
